FAERS Safety Report 9099260 (Version 1)
Quarter: 2013Q1

REPORT INFORMATION
  Report Type: Spontaneous
  Country: GB (occurrence: GB)
  Receive Date: 20130214
  Receipt Date: 20130214
  Transmission Date: 20140127
  Serious: Yes (Other)
  Sender: FDA-Public Use
  Company Number: GB-PFIZER INC-2013056353

PATIENT
  Age: 23 Year
  Sex: Male
  Weight: 69.9 kg

DRUGS (1)
  1. CHAMPIX [Suspect]
     Indication: SMOKING CESSATION THERAPY
     Dosage: 0.5 MG, UNK
     Route: 048
     Dates: start: 20130123, end: 20130128

REACTIONS (3)
  - Toothache [Recovering/Resolving]
  - Gingival pain [Recovering/Resolving]
  - Gingival swelling [Unknown]
